FAERS Safety Report 5464125-4 (Version None)
Quarter: 2007Q3

REPORT INFORMATION
  Report Type: 
  Country: None (occurrence: None)
  Receive Date: 20070921
  Receipt Date: 20070912
  Transmission Date: 20080115
  Serious: No
  Sender: FDA-Public Use
  Company Number: DE-BAXTER-2007BH003563

PATIENT
  Age: 51 Year
  Sex: Male

DRUGS (7)
  1. IMMUNE GLOBULIN INTRAVENOUS (HUMAN) [Suspect]
     Indication: PARANEOPLASTIC SYNDROME
     Route: 042
     Dates: start: 20070120, end: 20070120
  2. IMMUNE GLOBULIN INTRAVENOUS (HUMAN) [Suspect]
     Route: 042
     Dates: start: 20070120, end: 20070120
  3. DIGITOXIN TAB [Concomitant]
  4. ASPIRIN [Concomitant]
  5. SPIRIVA [Concomitant]
  6. SEREVENT [Concomitant]
  7. NEXIUM [Concomitant]

REACTIONS (6)
  - BACK PAIN [None]
  - BLOOD BILIRUBIN INCREASED [None]
  - BLOOD LACTATE DEHYDROGENASE ABNORMAL [None]
  - FLANK PAIN [None]
  - HAEMOLYSIS [None]
  - HYPERSENSITIVITY [None]
